FAERS Safety Report 8180692-4 (Version None)
Quarter: 2012Q1

REPORT INFORMATION
  Report Type: 
  Country: None (occurrence: None)
  Receive Date: 20120302
  Receipt Date: 20120222
  Transmission Date: 20120608
  Serious: Yes (Hospitalization)
  Sender: FDA-Public Use
  Company Number: US-JNJFOC-20120112068

PATIENT
  Sex: Female
  Weight: 61.24 kg

DRUGS (3)
  1. METHOTREXATE [Concomitant]
     Indication: POLYARTHRITIS
     Dates: start: 20080101
  2. PREDNISONE TAB [Concomitant]
     Indication: POLYARTHRITIS
     Dosage: VARYING-LAST ON 3 MG WEEKLY
     Dates: start: 20090101
  3. SIMPONI [Suspect]
     Indication: RHEUMATOID ARTHRITIS
     Dosage: INITIAL DOSE
     Route: 058
     Dates: start: 20111222

REACTIONS (1)
  - B-CELL LYMPHOMA [None]
